FAERS Safety Report 7510068-1 (Version None)
Quarter: 2011Q2

REPORT INFORMATION
  Report Type: 
  Country: None (occurrence: None)
  Receive Date: 20110527
  Receipt Date: 20110516
  Transmission Date: 20111010
  Serious: Yes (Hospitalization)
  Sender: FDA-Public Use
  Company Number: US-MYLANLABS-2011S1010350

PATIENT
  Age: 69 Year
  Sex: Male

DRUGS (2)
  1. OXYBUTYNIN [Suspect]
     Route: 065
  2. OXYBUTYNIN [Suspect]
     Route: 065

REACTIONS (8)
  - CHEST PAIN [None]
  - URINARY INCONTINENCE [None]
  - CONFUSIONAL STATE [None]
  - OEDEMA [None]
  - RENAL FAILURE ACUTE [None]
  - DELIRIUM [None]
  - DYSPEPSIA [None]
  - DYSPNOEA [None]
